FAERS Safety Report 10034893 (Version 1)
Quarter: 2014Q1

REPORT INFORMATION
  Report Type: Spontaneous
  Country: US (occurrence: None)
  Receive Date: 20140306
  Receipt Date: 20140306
  Transmission Date: 20141002
  Serious: Yes (Other)
  Sender: FDA-Public Use
  Company Number: 163-21880-13103945

PATIENT
  Age: 66 Year
  Sex: Male
  Weight: 72.6 kg

DRUGS (3)
  1. REVLIMID (LENALIDOMIDE) (25 MILLIGRAM, CAPSULES) [Suspect]
     Indication: PLASMA CELL MYELOMA
     Dosage: 25 MG, 1 IN 1 D, PO 11/2011 - UNKNOWN THERAPY DATE
     Route: 048
     Dates: start: 201111
  2. ASPIRIN (ACETYLSALICYLIC ACID) (ENTERIC-COATED TABLET) [Concomitant]
  3. LISINOPRIL AND HYDROCHLORIDTHIAZIDE (ZESTORETIC) (TABLETS) [Concomitant]

REACTIONS (1)
  - Drug intolerance [None]
